FAERS Safety Report 5087317-5 (Version None)
Quarter: 2006Q3

REPORT INFORMATION
  Report Type: 
  Country: None (occurrence: None)
  Receive Date: 20060821
  Receipt Date: 20060808
  Transmission Date: 20061208
  Serious: Yes (Life-Threatening)
  Sender: FDA-Public Use
  Company Number: HQWYE216109AUG06

PATIENT
  Age: 18 Year
  Sex: Male

DRUGS (18)
  1. MYLOTARG [Suspect]
     Indication: ACUTE LEUKAEMIA
     Dosage: 9 MG/M^2 1X PER 1 DAY INTRAVENOUS DRIP
     Route: 041
     Dates: start: 20060516, end: 20060516
  2. CYTARABINE [Concomitant]
  3. ACYCLOVIR [Concomitant]
  4. MEROPEN (MEROPENEM) [Concomitant]
  5. VFEND [Concomitant]
  6. TARGOCID [Concomitant]
  7. CIPROXAN (CIPROFLOXACIN HYDROCHLORIDE) [Concomitant]
  8. GANCICLOVIR [Concomitant]
  9. URSO 250 [Concomitant]
  10. BLOPRESS (CANDESARTAN CILEXETIL) [Concomitant]
  11. OMEPRAZOLE [Concomitant]
  12. MOEPHINE HYDROCHLORIDE (MORPHINE HYDROCHLORIDE) [Concomitant]
  13. FAMOTIDINE [Concomitant]
  14. BIOFERMIN R (STREPTOCOCCUS FAECALIS) [Concomitant]
  15. ADSORBIN (ALUMINIUM SILICATE) [Concomitant]
  16. LOPERAMIDE HCL [Concomitant]
  17. AMLODIPINE BESYLATE [Concomitant]
  18. REBETOL [Concomitant]

REACTIONS (7)
  - ACTIVATED PARTIAL THROMBOPLASTIN TIME PROLONGED [None]
  - DISSEMINATED INTRAVASCULAR COAGULATION [None]
  - HYPERBILIRUBINAEMIA [None]
  - INFUSION RELATED REACTION [None]
  - PLATELET COUNT DECREASED [None]
  - PROTHROMBIN TIME PROLONGED [None]
  - RENAL FAILURE ACUTE [None]
